FAERS Safety Report 18053775 (Version 2)
Quarter: 2020Q3

REPORT INFORMATION
  Report Type: Spontaneous
  Country: MX (occurrence: MX)
  Receive Date: 20200722
  Receipt Date: 20200728
  Transmission Date: 20201103
  Serious: Yes (Other)
  Sender: FDA-Public Use
  Company Number: MX-ASTRAZENECA-2020SE90558

PATIENT
  Age: 66 Year
  Sex: Female

DRUGS (11)
  1. DIOVAN [Concomitant]
     Active Substance: VALSARTAN
     Indication: BLOOD PRESSURE MEASUREMENT
     Route: 048
     Dates: start: 2016
  2. LIPITOR [Concomitant]
     Active Substance: ATORVASTATIN CALCIUM
     Indication: BLOOD PRESSURE MEASUREMENT
     Route: 048
     Dates: start: 2016
  3. JANUVIA [Concomitant]
     Active Substance: SITAGLIPTIN PHOSPHATE
     Indication: DIABETES MELLITUS
     Route: 048
     Dates: start: 2016
  4. RIOPAN [Concomitant]
     Indication: ABDOMINAL DISCOMFORT
     Dosage: 80MG/10MG/1 ML), PROTECT STOMACH/1 SACHET PER DAY
     Dates: start: 2016
  5. PRISTIQ EXTENDED?RELEASE [Concomitant]
     Active Substance: DESVENLAFAXINE SUCCINATE
     Dosage: 1 TABLET A DAY, ORAL ROUTE
     Route: 048
     Dates: start: 2016
  6. SERONEX [Concomitant]
     Route: 048
     Dates: start: 2016
  7. DIOVAN [Concomitant]
     Active Substance: VALSARTAN
     Indication: HYPERTENSION
     Route: 048
     Dates: start: 2016
  8. NEXIUM [Suspect]
     Active Substance: ESOMEPRAZOLE MAGNESIUM
     Indication: DIABETES MELLITUS
     Route: 048
     Dates: start: 2005
  9. LIPITOR [Concomitant]
     Active Substance: ATORVASTATIN CALCIUM
     Indication: HYPERTENSION
     Route: 048
     Dates: start: 2016
  10. METFORMIN [Concomitant]
     Active Substance: METFORMIN HYDROCHLORIDE
     Indication: DIABETES MELLITUS
     Dosage: 800MG, TWO AND 1/2 TABLETS A DAY
     Route: 048
     Dates: start: 2016
  11. UNIVAL [Concomitant]
     Indication: GASTROINTESTINAL DISORDER PROPHYLAXIS

REACTIONS (2)
  - Gait disturbance [Unknown]
  - Diabetic complication [Unknown]
